FAERS Safety Report 8188034 (Version 2)
Quarter: 2014Q1

REPORT INFORMATION
  Report Type: Spontaneous
  Country: US (occurrence: US)
  Receive Date: 20111018
  Receipt Date: 20140107
  Transmission Date: 20141002
  Serious: No
  Sender: FDA-Public Use
  Company Number: US-ASTRAZENECA-2010SE43816

PATIENT
  Age: 13922 Day
  Sex: Male

DRUGS (3)
  1. SYMBICORT [Suspect]
     Indication: ASTHMA
     Dosage: 160/4.5 MCG BID
     Route: 055
     Dates: start: 2008
  2. SYMBICORT [Suspect]
     Indication: ASTHMA
     Dosage: 160/4.5 MCG 1 PUFF BID
     Route: 055
     Dates: start: 201008
  3. ALBUTEROL [Concomitant]

REACTIONS (5)
  - Increased upper airway secretion [Unknown]
  - Chest discomfort [Unknown]
  - Cough [Unknown]
  - Drug dose omission [Unknown]
  - Intentional drug misuse [Unknown]
